FAERS Safety Report 19904644 (Version 1)
Quarter: 2021Q3

REPORT INFORMATION
  Report Type: Spontaneous
  Country: FR (occurrence: FR)
  Receive Date: 20210930
  Receipt Date: 20210930
  Transmission Date: 20211014
  Serious: Yes (Other)
  Sender: FDA-Public Use
  Company Number: FR-TEVA-2021-FR-1958530

PATIENT
  Age: 85 Year
  Sex: Female
  Weight: 80 kg

DRUGS (1)
  1. OFLOXACINE [Suspect]
     Active Substance: OFLOXACIN
     Indication: PYELONEPHRITIS
     Dosage: 400 MILLIGRAM DAILY; 200MGX2 / D
     Route: 048
     Dates: start: 20210629, end: 20210630

REACTIONS (1)
  - Hallucination, visual [Recovered/Resolved]

NARRATIVE: CASE EVENT DATE: 20210630
